FAERS Safety Report 7772445-3 (Version None)
Quarter: 2011Q3

REPORT INFORMATION
  Report Type: 
  Country: None (occurrence: None)
  Receive Date: 20110922
  Receipt Date: 20110911
  Transmission Date: 20111222
  Serious: No
  Sender: FDA-Public Use
  Company Number: US-B.I. PHARMACEUTICALS,INC./RIDGEFIELD-2011-BP-21958BP

PATIENT
  Sex: Male

DRUGS (2)
  1. ZANTAC 150 [Suspect]
     Dosage: 225 MG
     Route: 048
     Dates: start: 20110910
  2. ZANTAC 150 [Suspect]
     Indication: ABDOMINAL PAIN UPPER
     Dosage: 150 MG
     Route: 048
     Dates: start: 20010101

REACTIONS (2)
  - FATIGUE [None]
  - ABDOMINAL PAIN UPPER [None]
